FAERS Safety Report 7376873 (Version 6)
Quarter: 2012Q4

REPORT INFORMATION
  Report Type: Report from Study
  Country: DE (occurrence: DE)
  Receive Date: 20100505
  Receipt Date: 20121130
  Transmission Date: 20130627
  Serious: Yes (Hospitalization, Other)
  Sender: FDA-Public Use
  Company Number: DE-BIOGENIDEC-2010BI013614

PATIENT
  Age: 54 Year
  Sex: Female
  Weight: 60 kg

DRUGS (5)
  1. TYSABRI [Suspect]
     Indication: MULTIPLE SCLEROSIS
     Route: 042
     Dates: start: 20080304, end: 20081215
  2. GABAPENTIN [Concomitant]
     Indication: MULTIPLE SCLEROSIS
  3. IBUPROFEN [Concomitant]
     Indication: PAIN
  4. LIORESAL [Concomitant]
     Indication: MUSCLE SPASTICITY
  5. TURIXIN [Concomitant]

REACTIONS (1)
  - Breast cancer [Recovered/Resolved]
